FAERS Safety Report 23188316 (Version 4)
Quarter: 2024Q1

REPORT INFORMATION
  Report Type: Spontaneous
  Country: US (occurrence: US)
  Receive Date: 20231115
  Receipt Date: 20240312
  Transmission Date: 20240410
  Serious: No
  Sender: FDA-Public Use
  Company Number: US-PFIZER INC-PV202300183046

PATIENT
  Age: 53 Year
  Sex: Female

DRUGS (1)
  1. IBRANCE [Suspect]
     Active Substance: PALBOCICLIB
     Dosage: 125 MG

REACTIONS (8)
  - Dysgeusia [Recovered/Resolved]
  - Oral mucosal exfoliation [Recovered/Resolved]
  - Gingival blister [Unknown]
  - Gingival disorder [Unknown]
  - Oral disorder [Unknown]
  - White blood cell count decreased [Not Recovered/Not Resolved]
  - Oral mucosal blistering [Unknown]
  - Nausea [Recovering/Resolving]
